FAERS Safety Report 4927157-8 (Version None)
Quarter: 2006Q1

REPORT INFORMATION
  Report Type: 
  Country: None (occurrence: None)
  Receive Date: 20060222
  Receipt Date: 20060214
  Transmission Date: 20060701
  Serious: Yes (Other)
  Sender: FDA-Public Use
  Company Number: 2006022132

PATIENT
  Sex: Male

DRUGS (2)
  1. NORVASC [Suspect]
     Indication: ILL-DEFINED DISORDER
  2. INSULIN HUMULIN L (INSULIN HUMAN ZINC SUSPENSION) [Concomitant]

REACTIONS (1)
  - RENAL TRANSPLANT [None]
